FAERS Safety Report 8110947-0 (Version None)
Quarter: 2012Q1

REPORT INFORMATION
  Report Type: 
  Country: None (occurrence: None)
  Receive Date: 20120203
  Receipt Date: 20110103
  Transmission Date: 20120608
  Serious: No
  Sender: FDA-Public Use
  Company Number: US-GLAXOSMITHKLINE-A0902503A

PATIENT
  Age: 45 Year
  Sex: Female

DRUGS (6)
  1. TOPAMAX [Concomitant]
  2. ADDERALL 5 [Concomitant]
  3. VYVANSE [Concomitant]
  4. LAMICTAL [Suspect]
     Indication: BIPOLAR DISORDER
     Route: 048
     Dates: start: 20101222
  5. YAZ [Concomitant]
  6. PRISTIQ [Concomitant]

REACTIONS (3)
  - EXPIRED DRUG ADMINISTERED [None]
  - AGITATION [None]
  - DRUG INEFFECTIVE [None]
